FAERS Safety Report 8271684 (Version 2)
Quarter: 2015Q2

REPORT INFORMATION
  Report Type: Spontaneous
  Country: US (occurrence: US)
  Receive Date: 20111201
  Receipt Date: 20150416
  Transmission Date: 20150821
  Serious: Yes (Hospitalization, Other)
  Sender: FDA-Public Use
  Company Number: US-ASTRAZENECA-2011SE58857

PATIENT
  Age: 86 Year
  Sex: Female
  Weight: 62.6 kg

DRUGS (9)
  1. ASPIRIN. [Concomitant]
     Active Substance: ASPIRIN
  2. SYNTHROID [Concomitant]
     Active Substance: LEVOTHYROXINE SODIUM
     Indication: THYROID DISORDER
  3. PLAVIX [Concomitant]
     Active Substance: CLOPIDOGREL BISULFATE
  4. LASIX [Concomitant]
     Active Substance: FUROSEMIDE
     Indication: FLUID RETENTION
  5. TOPROL XL [Suspect]
     Active Substance: METOPROLOL SUCCINATE
     Indication: CARDIAC DISORDER
     Route: 048
  6. NEXIUM [Suspect]
     Active Substance: ESOMEPRAZOLE MAGNESIUM
     Route: 048
  7. TOPROL XL [Suspect]
     Active Substance: METOPROLOL SUCCINATE
     Indication: BLOOD PRESSURE ABNORMAL
     Route: 048
  8. COREG [Concomitant]
     Active Substance: CARVEDILOL
  9. ATACAND [Suspect]
     Active Substance: CANDESARTAN CILEXETIL
     Route: 048

REACTIONS (26)
  - Cystitis [Unknown]
  - Cerebrovascular accident [Unknown]
  - Myocardial infarction [Recovered/Resolved]
  - Lung carcinoma cell type unspecified stage IV [Unknown]
  - Blood test abnormal [Unknown]
  - Presyncope [Unknown]
  - Dysphonia [Unknown]
  - Tremor [Unknown]
  - Sepsis [Recovered/Resolved]
  - Viral infection [Unknown]
  - Vertigo [Unknown]
  - Dizziness [Unknown]
  - Ulcer haemorrhage [Unknown]
  - Pneumonia [Unknown]
  - Neuropathy peripheral [Unknown]
  - Thyroid disorder [Unknown]
  - Abasia [Unknown]
  - Body height decreased [Unknown]
  - Cardiac failure congestive [Unknown]
  - Feeding disorder [Unknown]
  - Malaise [Unknown]
  - Weight decreased [Unknown]
  - Dysphagia [Unknown]
  - Weight increased [Unknown]
  - Generalised oedema [Unknown]
  - Kidney infection [Unknown]

NARRATIVE: CASE EVENT DATE: 2012
